FAERS Safety Report 18668963 (Version 1)
Quarter: 2020Q4

REPORT INFORMATION
  Report Type: Spontaneous
  Country: DE (occurrence: DE)
  Receive Date: 20201228
  Receipt Date: 20201228
  Transmission Date: 20210114
  Serious: Yes (Hospitalization, Other)
  Sender: FDA-Public Use
  Company Number: DE-TEVA-2020-DE-1860062

PATIENT
  Age: 91 Year
  Sex: Male

DRUGS (11)
  1. METAMIZOL [Concomitant]
     Active Substance: METAMIZOLE SODIUM
     Dosage: 500 MG, AS NEEDED
     Route: 065
  2. ASS 100 [Concomitant]
     Active Substance: ASPIRIN
     Dosage: 100 MILLIGRAM DAILY; 1-0-0-0
  3. TORASEMID [Suspect]
     Active Substance: TORSEMIDE
     Dosage: 40 MILLIGRAM DAILY; 1-1-0-0
  4. AMLODIPIN [Suspect]
     Active Substance: AMLODIPINE BESYLATE
     Dosage: .5 DOSAGE FORMS DAILY; 5 MG, 0.5-0-0-0
  5. TAMSULOSIN [Concomitant]
     Active Substance: TAMSULOSIN
     Dosage: .4 MILLIGRAM DAILY; 0-0-1-0
  6. PIPAMPERON [Concomitant]
     Active Substance: PIPAMPERONE HYDROCHLORIDE
     Dosage: 10 MILLIGRAM DAILY; 0-1-1-0
  7. REVINTI [Concomitant]
     Dosage: 1 DOSAGE FORMS DAILY; 92|22 UG, 1-0-0-0
  8. ALLOPURINOL. [Concomitant]
     Active Substance: ALLOPURINOL
     Dosage: 100 MILLIGRAM DAILY; 0-1-0-0
  9. ZOPICLON [Concomitant]
     Active Substance: ZOPICLONE
     Dosage: .5 DOSAGE FORMS DAILY; 7.5 MG, 0-0-0-0.5
  10. METAMIZOL [Concomitant]
     Active Substance: METAMIZOLE SODIUM
     Dosage: 1000 MILLIGRAM DAILY; 1-0-1-0
  11. MACROGOL [Concomitant]
     Active Substance: POLYETHYLENE GLYCOLS
     Dosage: AS NEEDED

REACTIONS (6)
  - Product monitoring error [Unknown]
  - Hypotension [Unknown]
  - Renal impairment [Unknown]
  - Condition aggravated [Unknown]
  - Dehydration [Unknown]
  - Acute kidney injury [Unknown]
